FAERS Safety Report 19241239 (Version 3)
Quarter: 2021Q3

REPORT INFORMATION
  Report Type: Spontaneous
  Country: US (occurrence: US)
  Receive Date: 20210510
  Receipt Date: 20210728
  Transmission Date: 20211014
  Serious: Yes (Other)
  Sender: FDA-Public Use
  Company Number: US-ROCHE-2824629

PATIENT
  Age: 69 Year
  Sex: Female
  Weight: 55.39 kg

DRUGS (10)
  1. FAMOTIDINE. [Concomitant]
     Active Substance: FAMOTIDINE
  2. HEMLIBRA [Suspect]
     Active Substance: EMICIZUMAB-KXWH
     Indication: FACTOR VIII DEFICIENCY
     Dosage: INJECT 175.8MG (1.17 ML) SUBCUTANEOUSLY ON DAY 1, DAY 8, DAY 15 AND DAY 22 FOLLOWED BY EVERY 14 DAY(
     Route: 058
     Dates: start: 20210324
  3. RITUXAN [Suspect]
     Active Substance: RITUXIMAB
     Indication: FACTOR VIII DEFICIENCY
     Route: 042
     Dates: start: 20200819, end: 20200902
  4. ACETAMINOPHEN;CODEINE [Concomitant]
     Active Substance: ACETAMINOPHEN\CODEINE PHOSPHATE
     Indication: PAIN
  5. HEMLIBRA [Suspect]
     Active Substance: EMICIZUMAB-KXWH
     Indication: COAGULOPATHY
  6. HEMLIBRA [Suspect]
     Active Substance: EMICIZUMAB-KXWH
     Indication: ACQUIRED HAEMOPHILIA
  7. RITUXAN [Suspect]
     Active Substance: RITUXIMAB
     Route: 042
     Dates: start: 20210204, end: 20210224
  8. PREDNISONE. [Suspect]
     Active Substance: PREDNISONE
     Indication: FACTOR VIII DEFICIENCY
     Route: 065
     Dates: start: 202003
  9. CYCLOPHOSPHAMIDE. [Suspect]
     Active Substance: CYCLOPHOSPHAMIDE
     Indication: FACTOR VIII DEFICIENCY
     Route: 065
     Dates: start: 20200916
  10. FLECAINIDE ACETATE. [Concomitant]
     Active Substance: FLECAINIDE ACETATE
     Indication: ATRIAL FIBRILLATION

REACTIONS (8)
  - Injection site pain [Recovered/Resolved]
  - Off label use [Unknown]
  - Alopecia [Not Recovered/Not Resolved]
  - Spinal fracture [Unknown]
  - Pruritus [Recovered/Resolved]
  - Pain [Not Recovered/Not Resolved]
  - Injection site erythema [Recovered/Resolved]
  - Fall [Unknown]

NARRATIVE: CASE EVENT DATE: 20200819
